FAERS Safety Report 24064193 (Version 1)
Quarter: 2024Q3

REPORT INFORMATION
  Report Type: Spontaneous
  Country: US (occurrence: US)
  Receive Date: 20240709
  Receipt Date: 20240709
  Transmission Date: 20241017
  Serious: No
  Sender: HETERO
  Company Number: US-HETERO-HET2024US01723

PATIENT

DRUGS (1)
  1. PANTOPRAZOLE [Suspect]
     Active Substance: PANTOPRAZOLE
     Indication: Gastrooesophageal reflux disease
     Dosage: UNK
     Route: 065
     Dates: end: 202307

REACTIONS (7)
  - Cough [Recovered/Resolved]
  - Dyspepsia [Recovered/Resolved]
  - Regurgitation [Recovered/Resolved]
  - Retching [Recovered/Resolved]
  - Nausea [Recovered/Resolved]
  - Product quality issue [Recovered/Resolved]
  - Product substitution issue [Unknown]
